FAERS Safety Report 9445637 (Version 2)
Quarter: 2013Q3

REPORT INFORMATION
  Report Type: Report from Study
  Country: DE (occurrence: DE)
  Receive Date: 20130807
  Receipt Date: 20130812
  Transmission Date: 20140515
  Serious: Yes (Hospitalization)
  Sender: FDA-Public Use
  Company Number: DE-AMGEN-DEUNI2013049963

PATIENT
  Age: 65 Year
  Sex: Male

DRUGS (3)
  1. DENOSUMAB [Suspect]
     Indication: METASTASES TO BONE
     Dosage: 120 MG, Q4WK
     Route: 058
     Dates: start: 20130502
  2. CISPLATIN [Concomitant]
     Dosage: UNK
     Dates: start: 20130506, end: 20130627
  3. ALIMTA [Concomitant]
     Dosage: UNK
     Dates: start: 20130506, end: 20130702

REACTIONS (1)
  - Chest discomfort [Recovered/Resolved]
